FAERS Safety Report 16273078 (Version 1)
Quarter: 2019Q2

REPORT INFORMATION
  Report Type: Spontaneous
  Country: DE (occurrence: DE)
  Receive Date: 20190506
  Receipt Date: 20190506
  Transmission Date: 20190711
  Serious: Yes (Hospitalization, Other)
  Sender: FDA-Public Use
  Company Number: DE-AUROBINDO-AUR-APL-2019-024258

PATIENT

DRUGS (21)
  1. METOHEXAL SUCC [Concomitant]
     Active Substance: METOPROLOL SUCCINATE
     Indication: PRODUCT USED FOR UNKNOWN INDICATION
     Dosage: 47.5 MG, BID (1-0-1-0)
     Route: 065
  2. BRINZOLAMIDE [Concomitant]
     Active Substance: BRINZOLAMIDE
     Indication: PRODUCT USED FOR UNKNOWN INDICATION
     Dosage: 1-0-1
     Route: 065
  3. PANTOPRAZOL HEXAL [Concomitant]
     Active Substance: PANTOPRAZOLE
     Indication: PRODUCT USED FOR UNKNOWN INDICATION
     Dosage: 40 MG, QD (0-0-1-0)
     Route: 065
  4. NOVAMINSULFON-RATIOPHARM [Concomitant]
     Active Substance: METAMIZOLE
     Indication: PRODUCT USED FOR UNKNOWN INDICATION
     Dosage: 40 DRP, QID
     Route: 065
  5. PARACETAMOL RATIOPHARM [Concomitant]
     Active Substance: ACETAMINOPHEN
     Indication: PRODUCT USED FOR UNKNOWN INDICATION
     Dosage: 500 MG, (1-2 TABLETS UP TO 4TIMES PER DAY)
     Route: 065
  6. VALSARTAN PUREN [Concomitant]
     Active Substance: VALSARTAN
     Indication: PRODUCT USED FOR UNKNOWN INDICATION
     Dosage: 40 MG, BID (2-0-0-0)
     Route: 065
  7. VALSARTAN. [Suspect]
     Active Substance: VALSARTAN
     Indication: HYPERTENSION
     Dosage: 80 OT, UNK
     Route: 048
  8. PROTAPHANE [Concomitant]
     Active Substance: INSULIN HUMAN
     Indication: BLOOD GLUCOSE ABNORMAL
     Dosage: 100 IE/ML (15 IE AT 6 AM AND AT 10 PM)
     Route: 065
     Dates: start: 200103
  9. METOPROLOL. [Concomitant]
     Active Substance: METOPROLOL
     Dosage: 100 MILLIGRAM, ONCE A DAY
     Route: 048
     Dates: start: 2000
  10. AZOPT [Concomitant]
     Active Substance: BRINZOLAMIDE
     Indication: PRODUCT USED FOR UNKNOWN INDICATION
     Dosage: 10 MG/ML, (1 EVERY 15 MINUTES)
     Route: 065
  11. VALSARTAN HEXAL COMP [Suspect]
     Active Substance: VALSARTAN
     Indication: PRODUCT USED FOR UNKNOWN INDICATION
     Dosage: UNK
     Route: 065
     Dates: start: 20120712, end: 20180727
  12. ACTRAPID [Concomitant]
     Active Substance: INSULIN HUMAN
     Indication: BLOOD GLUCOSE ABNORMAL
     Dosage: 100 IE/ML, (8 IE-0, IE-10, IE-0 IE)
     Route: 016
     Dates: start: 201512
  13. VALSARTAN 1A PHARMA [Suspect]
     Active Substance: VALSARTAN
     Indication: HYPERTENSION
     Dosage: UNK
     Route: 065
     Dates: start: 20120216
  14. TORASEMID HEXAL [Concomitant]
     Active Substance: TORSEMIDE
     Indication: PRODUCT USED FOR UNKNOWN INDICATION
     Dosage: 5 MG, QD (1-0-0-0)
     Route: 065
  15. INSULIN HUMAN ISOPHANE [Concomitant]
     Active Substance: INSULIN HUMAN
     Indication: PRODUCT USED FOR UNKNOWN INDICATION
     Dosage: 15-0-0-15
     Route: 058
  16. TOREM [Concomitant]
     Active Substance: TORSEMIDE
     Indication: PRODUCT USED FOR UNKNOWN INDICATION
     Dosage: 5 MG, QD
     Route: 065
  17. METOPROLOL. [Concomitant]
     Active Substance: METOPROLOL
     Indication: PRODUCT USED FOR UNKNOWN INDICATION
     Dosage: 100 MG (?-0-?)
     Route: 048
  18. HCT HEXAL [Concomitant]
     Active Substance: HYDROCHLOROTHIAZIDE
     Indication: PRODUCT USED FOR UNKNOWN INDICATION
     Dosage: 12.5 MG, QD (1-0-0-0)
     Route: 065
  19. DICLOFENAC RATIOPHARM [Concomitant]
     Active Substance: DICLOFENAC
     Indication: PRODUCT USED FOR UNKNOWN INDICATION
     Dosage: 50 MG, QID (MAX. 4TIME DAILY)
     Route: 065
  20. VALSARTAN AND HYDROCHLOROTHIAZIDE [Concomitant]
     Active Substance: HYDROCHLOROTHIAZIDE\VALSARTAN
     Indication: HYPERTENSION
     Dosage: 1 DF, QD (?-0-0, DAILY)
     Route: 058
  21. TORASEMIDE [Concomitant]
     Active Substance: TORSEMIDE
     Indication: PRODUCT USED FOR UNKNOWN INDICATION
     Dosage: ?-0-0
     Route: 065
     Dates: start: 201802

REACTIONS (16)
  - Feeling abnormal [Unknown]
  - Malignant neoplasm of pleura [Unknown]
  - General physical health deterioration [Unknown]
  - Pneumothorax [Unknown]
  - Malignant pleural effusion [Unknown]
  - Dyspnoea [Unknown]
  - Asthenia [Unknown]
  - Chilaiditi^s syndrome [Unknown]
  - Dyspnoea exertional [Unknown]
  - Lung neoplasm malignant [Not Recovered/Not Resolved]
  - Aspiration pleural cavity [Unknown]
  - Cardiac aneurysm [Unknown]
  - Left ventricular dysfunction [Unknown]
  - Ventricular hypokinesia [Unknown]
  - Effusion [Unknown]
  - Breath sounds abnormal [Unknown]

NARRATIVE: CASE EVENT DATE: 2018
